FAERS Safety Report 7397900-X (Version None)
Quarter: 2011Q2

REPORT INFORMATION
  Report Type: 
  Country: None (occurrence: None)
  Receive Date: 20110406
  Receipt Date: 20110324
  Transmission Date: 20111010
  Serious: Yes (Hospitalization, Disabling, Other)
  Sender: FDA-Public Use
  Company Number: PHEH2007US02903

PATIENT
  Sex: Female

DRUGS (58)
  1. CELEBREX [Concomitant]
     Dosage: 200 MG, BID
  2. ACETAMINOPHEN [Concomitant]
     Dosage: UNK
  3. METFORMIN [Concomitant]
  4. TRICOR [Concomitant]
  5. EFFEXOR [Concomitant]
     Dosage: 37.5 MG, QD
     Route: 048
  6. FAMOTIDINE [Concomitant]
     Dosage: 20 MG, QW
  7. DIAZEPAM [Concomitant]
     Dosage: 10 MG, UNK
     Route: 048
  8. INSULIN LISPRO [Concomitant]
     Dosage: UNK
  9. ZOMETA [Suspect]
     Indication: BONE NEOPLASM MALIGNANT
     Dosage: UNK
     Dates: start: 20060101, end: 20060417
  10. ZOLADEX [Concomitant]
     Dosage: 10.8 MG, UNK
     Route: 058
  11. FASLODEX [Concomitant]
  12. HYDROCORTISONE SODIUM SUCCINATE [Concomitant]
     Dosage: 100 MG, PRN
  13. METRONIDAZOLE [Concomitant]
     Dosage: 500 MG, UNK
     Route: 048
  14. FEMARA [Concomitant]
     Dosage: 2.5 MG, QD
  15. XANAX [Concomitant]
     Dosage: 0.5 MG, TID
  16. LIDODERM [Concomitant]
  17. METOPROLOL SUCCINATE [Concomitant]
     Dosage: UNK
  18. FENTANYL [Concomitant]
     Route: 062
  19. LOMOTIL [Concomitant]
     Dosage: UNK
  20. HYDROMORPHONE HCL [Concomitant]
     Dosage: 2 MG, UNK
     Route: 048
  21. DAPTOMYCIN [Concomitant]
     Dosage: 440 MG, UNK
  22. CELEXA [Concomitant]
     Dosage: 40 MG, QD
  23. CRESTOR [Concomitant]
  24. ASPIRIN [Concomitant]
     Dosage: 81 MG, QD
  25. XELODA [Concomitant]
  26. DEXAMETHASONE [Concomitant]
     Dosage: 20 MG, QW
  27. DIPHENHYDRAMINE HCL [Concomitant]
     Dosage: 50 MG, QW
  28. LEVOFLOXACIN [Concomitant]
     Dosage: 500 MG, ONCE/SINGLE
  29. DESIPRAMIDE HCL [Concomitant]
     Dosage: 10 MG, PRN
  30. ZOMETA [Suspect]
     Indication: BONE DENSITY DECREASED
  31. PRILOSEC [Concomitant]
     Dosage: UNK
  32. ALEVE [Concomitant]
  33. TRICHLORMETHIAZIDE [Concomitant]
     Dosage: 48 MG, QD
  34. CITALOPRAM [Concomitant]
     Dosage: 40 MG, QD
  35. MULTI-VITAMINS [Concomitant]
  36. PERIDEX [Concomitant]
  37. NIASPAN [Concomitant]
  38. LANTUS [Concomitant]
  39. NEXIUM [Concomitant]
     Dosage: UNK
     Route: 048
  40. LIPITOR [Concomitant]
     Dosage: 10 MG, QD
  41. VANCOMYCIN [Concomitant]
     Dosage: 1 G, QD
  42. EPINEPHRINE [Concomitant]
     Dosage: 1 MG, PRN
  43. MORPHINE [Concomitant]
     Dosage: 4 MG, UNK
  44. PROTONIX [Concomitant]
     Dosage: 40 MG, QD
  45. GRAPE SEED [Concomitant]
  46. OXYCODONE [Concomitant]
  47. AVASTIN [Concomitant]
  48. TAXOL [Concomitant]
  49. TAMOXIFEN CITRATE [Concomitant]
     Indication: BREAST CANCER
     Dosage: 20 MG, QD
     Dates: start: 20030605
  50. CHANTIX [Concomitant]
     Indication: SMOKING CESSATION THERAPY
     Dosage: 0.5 MG, BID
  51. PROCHLORPERAZINE [Concomitant]
     Dosage: 10 MG, PRN
  52. SENNA-S (DOCUSATE SODIUM/SENNOSIDES) [Concomitant]
     Dosage: UNK
     Route: 048
  53. AROMASIN [Concomitant]
     Indication: BREAST CANCER
  54. NEURONTIN [Concomitant]
  55. FISH OIL [Concomitant]
  56. LOVAZA [Concomitant]
  57. MECLIZINE [Concomitant]
     Dosage: UNK
  58. HYDROXYZINE [Concomitant]
     Dosage: 25 MG, QW
     Route: 048

REACTIONS (40)
  - FALL [None]
  - MUSCLE SPASMS [None]
  - VERTEBRAL FORAMINAL STENOSIS [None]
  - BLOOD PRESSURE INCREASED [None]
  - APHTHOUS STOMATITIS [None]
  - DIABETES MELLITUS [None]
  - METASTASES TO LIVER [None]
  - DIZZINESS [None]
  - PRIMARY SEQUESTRUM [None]
  - PHARYNGITIS [None]
  - OSTEONECROSIS OF JAW [None]
  - TOOTH ABSCESS [None]
  - ARTHRALGIA [None]
  - SPINAL CLAUDICATION [None]
  - OTITIS MEDIA ACUTE [None]
  - PNEUMONIA [None]
  - CARDIAC DISORDER [None]
  - CELLULITIS [None]
  - DIARRHOEA [None]
  - BRONCHIAL HYPERREACTIVITY [None]
  - GENERAL PHYSICAL HEALTH DETERIORATION [None]
  - OSTEOARTHRITIS [None]
  - POLYNEUROPATHY [None]
  - PALMAR-PLANTAR ERYTHRODYSAESTHESIA SYNDROME [None]
  - AMNESIA [None]
  - LYMPHADENOPATHY [None]
  - PAIN [None]
  - DECREASED INTEREST [None]
  - ACTINOMYCOSIS [None]
  - DEPRESSION [None]
  - GLUCOSE TOLERANCE IMPAIRED [None]
  - ANXIETY [None]
  - BONE DISORDER [None]
  - WEIGHT INCREASED [None]
  - JOINT SPRAIN [None]
  - EXCORIATION [None]
  - GROIN ABSCESS [None]
  - HYPOTHYROIDISM [None]
  - METABOLIC SYNDROME [None]
  - ACUTE SINUSITIS [None]
